FAERS Safety Report 4340282-8 (Version None)
Quarter: 2004Q2

REPORT INFORMATION
  Report Type: 
  Country: None (occurrence: None)
  Receive Date: 20040412
  Receipt Date: 20040406
  Transmission Date: 20050107
  Serious: Yes (Death)
  Sender: FDA-Public Use
  Company Number: 2004-04-0191

PATIENT
  Age: 48 Year
  Sex: Female

DRUGS (3)
  1. VIRAFERONPEG [Suspect]
     Indication: HEPATITIS C
     Dates: start: 20030801, end: 20040201
  2. REBETOL [Suspect]
     Indication: HEPATITIS C
     Dosage: ORAL
     Route: 048
     Dates: start: 20030801, end: 20040201
  3. THYROID HORMONE [Concomitant]

REACTIONS (3)
  - ANAEMIA [None]
  - NEUTROPENIA [None]
  - SUDDEN DEATH [None]
